FAERS Safety Report 5047663-8 (Version None)
Quarter: 2006Q3

REPORT INFORMATION
  Report Type: 
  Country: None (occurrence: None)
  Receive Date: 20060706
  Receipt Date: 20060706
  Transmission Date: 20061208
  Serious: Yes (Hospitalization)
  Sender: FDA-Public Use
  Company Number: None

PATIENT
  Age: 66 Year
  Sex: Male
  Weight: 0.074 kg

DRUGS (1)
  1. ULTRAVIST 150 [Suspect]
     Indication: CATHETERISATION CARDIAC
     Dosage: 175 ML IV X 1
     Route: 042
     Dates: start: 20060620

REACTIONS (8)
  - BLOOD PRESSURE SYSTOLIC INCREASED [None]
  - CHEST PAIN [None]
  - HEART RATE ABNORMAL [None]
  - OEDEMA PERIPHERAL [None]
  - ORBITAL OEDEMA [None]
  - OXYGEN SATURATION DECREASED [None]
  - PROCEDURAL COMPLICATION [None]
  - PROCEDURAL HYPOTENSION [None]
